FAERS Safety Report 8979710 (Version 3)
Quarter: 2013Q1

REPORT INFORMATION
  Report Type: Spontaneous
  Country: JP (occurrence: JP)
  Receive Date: 20121221
  Receipt Date: 20130204
  Transmission Date: 20140127
  Serious: Yes (Other)
  Sender: FDA-Public Use
  Company Number: JP-ASTELLAS-2012JP011889

PATIENT
  Age: 85 Year
  Sex: Male
  Weight: 54.4 kg

DRUGS (12)
  1. VESICARE [Suspect]
     Indication: HYPERTONIC BLADDER
     Dosage: UNK
     Route: 048
     Dates: start: 201211
  2. GONAX [Suspect]
     Indication: PROSTATE CANCER
     Dosage: UNK
     Route: 058
     Dates: start: 201211, end: 201211
  3. FLIVAS [Suspect]
     Dosage: UNK
     Route: 048
     Dates: start: 201211
  4. GLUCOBAY [Concomitant]
     Indication: DIABETES MELLITUS
     Dosage: 100 MG, TID
     Route: 048
     Dates: start: 20031125
  5. GLIMEPIRIDE [Concomitant]
     Indication: DIABETES MELLITUS
     Dosage: 1 MG, BID
     Route: 048
     Dates: start: 20100127
  6. DIOVAN [Concomitant]
     Indication: HYPERTENSION
     Dosage: 80 MG, UID/QD
     Route: 048
     Dates: start: 20031125, end: 20121205
  7. HERBESSER R [Concomitant]
     Indication: HYPERTENSION
     Dosage: 100 MG, UID/QD
     Route: 048
  8. FLUITRAN [Concomitant]
     Indication: HYPERTENSION
     Dosage: 2 MG, UID/QD
     Route: 048
     Dates: start: 20081206
  9. PLAVIX [Concomitant]
     Indication: CEREBRAL INFARCTION
     Dosage: 50 MG, UID/QD
     Route: 048
     Dates: start: 20100114
  10. SENNOSIDE                          /00571901/ [Concomitant]
     Indication: CONSTIPATION
     Dosage: UNK
     Route: 048
     Dates: start: 20070614
  11. COLEPOLI-R [Concomitant]
     Indication: CONSTIPATION
     Dosage: 1 G, TID
     Route: 048
     Dates: start: 20070614
  12. MAGNESIUM OXIDE [Concomitant]
     Indication: CONSTIPATION
     Dosage: 1 G, TID
     Route: 048
     Dates: start: 20070614

REACTIONS (3)
  - Asthma [Recovered/Resolved]
  - Drug eruption [Recovered/Resolved]
  - ECG signs of myocardial ischaemia [Not Recovered/Not Resolved]
